FAERS Safety Report 7357399-6 (Version None)
Quarter: 2011Q1

REPORT INFORMATION
  Report Type: 
  Country: None (occurrence: None)
  Receive Date: 20110308
  Receipt Date: 20110302
  Transmission Date: 20110831
  Serious: Yes (Other)
  Sender: FDA-Public Use
  Company Number: 201110082

PATIENT
  Sex: Female

DRUGS (1)
  1. LIORESAL [Suspect]
     Indication: MUSCLE SPASTICITY
     Dosage: DAILY, INTRATHECAL
     Route: 037

REACTIONS (8)
  - MOBILITY DECREASED [None]
  - MENTAL STATUS CHANGES [None]
  - DRUG WITHDRAWAL SYNDROME [None]
  - ABDOMINAL INFECTION [None]
  - OVERDOSE [None]
  - CELLULITIS [None]
  - MUSCLE SPASTICITY [None]
  - WOUND INFECTION [None]
